FAERS Safety Report 5766993-5 (Version None)
Quarter: 2008Q2

REPORT INFORMATION
  Report Type: 
  Country: None (occurrence: None)
  Receive Date: 20080612
  Receipt Date: 20080605
  Transmission Date: 20081010
  Serious: Yes (Other)
  Sender: FDA-Public Use
  Company Number: US-JNJFOC-20080602181

PATIENT
  Sex: Male
  Weight: 71.67 kg

DRUGS (1)
  1. DURAGESIC-100 [Suspect]
     Indication: PAIN
     Route: 062

REACTIONS (3)
  - RASH [None]
  - TOOTH INFECTION [None]
  - WRONG TECHNIQUE IN DRUG USAGE PROCESS [None]
